FAERS Safety Report 24648040 (Version 2)
Quarter: 2024Q4

REPORT INFORMATION
  Report Type: Report from Study
  Country: CA (occurrence: CA)
  Receive Date: 20241121
  Receipt Date: 20241212
  Transmission Date: 20250115
  Serious: Yes (Other)
  Sender: ALEXION PHARMACEUTICALS
  Company Number: CA-AstraZeneca-CH-00748110A

PATIENT
  Age: 50 Year

DRUGS (4)
  1. ANIFROLUMAB [Suspect]
     Active Substance: ANIFROLUMAB
     Indication: Systemic lupus erythematosus
     Dosage: 300 MILLIGRAM, Q4W
  2. ANIFROLUMAB [Suspect]
     Active Substance: ANIFROLUMAB
     Dosage: 300 MILLIGRAM, Q4W
     Route: 042
  3. ANIFROLUMAB [Suspect]
     Active Substance: ANIFROLUMAB
     Dosage: 300 MILLIGRAM, Q4W
  4. ANIFROLUMAB [Suspect]
     Active Substance: ANIFROLUMAB
     Dosage: 300 MILLIGRAM, Q4W
     Route: 042

REACTIONS (5)
  - Pain [Unknown]
  - Lupus-like syndrome [Recovered/Resolved]
  - Fatigue [Unknown]
  - Asthenia [Unknown]
  - Arthralgia [Recovered/Resolved]
